FAERS Safety Report 17011039 (Version 2)
Quarter: 2019Q4

REPORT INFORMATION
  Report Type: Spontaneous
  Country: US (occurrence: US)
  Receive Date: 20191108
  Receipt Date: 20191211
  Transmission Date: 20200122
  Serious: Yes (Hospitalization, Other)
  Sender: FDA-Public Use
  Company Number: US-GLAXOSMITHKLINE-US2019AMR199076

PATIENT
  Sex: Female

DRUGS (1)
  1. BREO ELLIPTA [Suspect]
     Active Substance: FLUTICASONE FUROATE\VILANTEROL TRIFENATATE
     Indication: ASTHMA
     Dosage: UNK UNK, QD
     Route: 065
     Dates: start: 20190829

REACTIONS (11)
  - Dyspnoea [Unknown]
  - Life support [Unknown]
  - Resuscitation [Unknown]
  - Drug ineffective [Unknown]
  - Pain [Not Recovered/Not Resolved]
  - Adverse drug reaction [Unknown]
  - Chest injury [Unknown]
  - Loss of consciousness [Unknown]
  - Asthma [Unknown]
  - Obstructive airways disorder [Unknown]
  - Asphyxia [Unknown]

NARRATIVE: CASE EVENT DATE: 20190831
